FAERS Safety Report 6111750-3 (Version None)
Quarter: 2009Q1

REPORT INFORMATION
  Report Type: 
  Country: None (occurrence: None)
  Receive Date: 20090311
  Receipt Date: 20080320
  Transmission Date: 20090719
  Serious: No
  Sender: FDA-Public Use
  Company Number: US-TYCO HEALTHCARE/MALLINCKRODT-T200800567

PATIENT

DRUGS (9)
  1. RESTORIL [Suspect]
     Indication: INSOMNIA
     Dosage: 30 MG, QD
     Route: 048
     Dates: start: 20070101, end: 20080301
  2. RESTORIL [Suspect]
     Dosage: 60 MG, NIGHTLY
     Route: 048
     Dates: start: 20080301
  3. AMBIEN [Suspect]
     Indication: INSOMNIA
     Dosage: 10 MG, UNK
     Dates: start: 20070101, end: 20070101
  4. SIMVASTATIN [Concomitant]
  5. FUROSEMIDE [Concomitant]
  6. ASPIRIN [Concomitant]
  7. HUMALOG [Concomitant]
  8. PRILOSEC [Concomitant]
  9. COUMADIN [Concomitant]

REACTIONS (2)
  - DRUG DEPENDENCE [None]
  - DRUG INEFFECTIVE [None]
